FAERS Safety Report 4383083-7 (Version None)
Quarter: 2004Q2

REPORT INFORMATION
  Report Type: 
  Country: None (occurrence: None)
  Receive Date: 20040618
  Receipt Date: 20040603
  Transmission Date: 20050107
  Serious: Yes (Hospitalization)
  Sender: FDA-Public Use
  Company Number: 2004-00029

PATIENT
  Age: 67 Year
  Sex: Female
  Weight: 77 kg

DRUGS (7)
  1. VELCADE [Suspect]
     Indication: MULTIPLE MYELOMA
     Dosage: 1.70 MG INTRAVENOUS
     Route: 042
     Dates: start: 20040522, end: 20040525
  2. DEXAMETHASONE [Concomitant]
  3. THALIDOMIDE (THALIDOMIDE) [Concomitant]
  4. CISPLATIN [Concomitant]
  5. ADRIAMYCIN PFS [Concomitant]
  6. CYCLOPHOSPHAMIDE [Concomitant]
  7. ETOPOSIDE [Concomitant]

REACTIONS (2)
  - HYPONATRAEMIA [None]
  - INAPPROPRIATE ANTIDIURETIC HORMONE SECRETION [None]
